FAERS Safety Report 13475127 (Version 1)
Quarter: 2017Q2

REPORT INFORMATION
  Report Type: Spontaneous
  Country: US (occurrence: US)
  Receive Date: 20170424
  Receipt Date: 20170424
  Transmission Date: 20170830
  Serious: Yes (Other)
  Sender: FDA-Public Use
  Company Number: US-BAUSCH-BL-2017-010041

PATIENT
  Sex: Female

DRUGS (3)
  1. OBAGI TRETINOIN [Suspect]
     Active Substance: TRETINOIN
     Indication: PRODUCT USED FOR UNKNOWN INDICATION
     Route: 065
  2. NU-DERM BLENDER [Suspect]
     Active Substance: HYDROQUINONE
     Indication: PRODUCT USED FOR UNKNOWN INDICATION
     Route: 065
  3. NU-DERM CLEAR [Suspect]
     Active Substance: HYDROQUINONE
     Indication: PRODUCT USED FOR UNKNOWN INDICATION
     Route: 065

REACTIONS (1)
  - Neoplasm malignant [Unknown]
